FAERS Safety Report 17038617 (Version 1)
Quarter: 2019Q4

REPORT INFORMATION
  Report Type: Spontaneous
  Country: US (occurrence: US)
  Receive Date: 20191115
  Receipt Date: 20191115
  Transmission Date: 20200122
  Serious: Yes (Hospitalization)
  Sender: FDA-Public Use
  Company Number: US-FRESENIUS KABI-FK201912564

PATIENT
  Age: 21 Year
  Sex: Male

DRUGS (1)
  1. SODIUM CHLORIDE 0.9% (MANUFACTURER UNKNOWN) [Suspect]
     Active Substance: SODIUM CHLORIDE
     Indication: INTENTIONAL PRODUCT MISUSE
     Dosage: 2 LITERS FOR COSMETIC EFFECT
     Route: 050

REACTIONS (3)
  - Cellulitis of male external genital organ [Recovered/Resolved with Sequelae]
  - Fournier^s gangrene [Recovered/Resolved with Sequelae]
  - Intentional product misuse [Recovered/Resolved with Sequelae]
